FAERS Safety Report 6817719-5 (Version None)
Quarter: 2010Q3

REPORT INFORMATION
  Report Type: 
  Country: None (occurrence: None)
  Receive Date: 20100706
  Receipt Date: 20100629
  Transmission Date: 20110219
  Serious: Yes (Other)
  Sender: FDA-Public Use
  Company Number: JP-PFIZER INC-2010081123

PATIENT

DRUGS (1)
  1. VFEND [Suspect]
     Dosage: UNK
     Route: 048
     Dates: start: 20100628

REACTIONS (2)
  - OSCILLOPSIA [None]
  - VISION BLURRED [None]
